FAERS Safety Report 5342243-9 (Version None)
Quarter: 2007Q2

REPORT INFORMATION
  Report Type: 
  Country: None (occurrence: None)
  Receive Date: 20070416
  Receipt Date: 20070305
  Transmission Date: 20071010
  Serious: No
  Sender: FDA-Public Use
  Company Number: 2007SP000780

PATIENT
  Age: 69 Year
  Sex: Female
  Weight: 67.1324 kg

DRUGS (7)
  1. LUNESTA [Suspect]
     Indication: INSOMNIA
     Dosage: SEE IMAGE
     Route: 048
     Dates: start: 20060101, end: 20060101
  2. LUNESTA [Suspect]
     Indication: INSOMNIA
     Dosage: SEE IMAGE
     Route: 048
     Dates: start: 20070101, end: 20070101
  3. PREDNISONE TAB [Concomitant]
  4. PRILOSEC [Concomitant]
  5. MULTIVITAMIN [Concomitant]
  6. HYDROCHLOROTHIAZIDE [Concomitant]
  7. LISINOPRIL [Concomitant]

REACTIONS (2)
  - INSOMNIA [None]
  - SOMNOLENCE [None]
